FAERS Safety Report 10471094 (Version 1)
Quarter: 2014Q3

REPORT INFORMATION
  Report Type: Spontaneous
  Country: SG (occurrence: SG)
  Receive Date: 20140923
  Receipt Date: 20140923
  Transmission Date: 20150326
  Serious: Yes (Hospitalization)
  Sender: FDA-Public Use
  Company Number: SG-BAYER-2014-140288

PATIENT
  Age: 64 Year
  Sex: Male

DRUGS (9)
  1. METFORMIN [Concomitant]
     Active Substance: METFORMIN HYDROCHLORIDE
  2. NORVASC [Concomitant]
     Active Substance: AMLODIPINE BESYLATE
  3. ACETYLSALICYLIC ACID (} 100 MG) [Suspect]
     Active Substance: ASPIRIN
     Dosage: UNK
     Dates: start: 20130716
  4. CLOPIDOGREL [Suspect]
     Active Substance: CLOPIDOGREL BISULFATE
     Dosage: UNK
     Dates: start: 20130716
  5. OLMESARTAN [Concomitant]
     Active Substance: OLMESARTAN
  6. CONCOR [BISOPROLOL FUMARATE] [Concomitant]
  7. LIPITOR [Concomitant]
     Active Substance: ATORVASTATIN CALCIUM
  8. ISOSORBIDE [ISOSORBIDE] [Concomitant]
  9. RANITIDINE [Concomitant]
     Active Substance: RANITIDINE\RANITIDINE HYDROCHLORIDE

REACTIONS (3)
  - Myocardial infarction [Recovered/Resolved]
  - Coronary artery disease [Recovered/Resolved]
  - Angina pectoris [Recovered/Resolved]

NARRATIVE: CASE EVENT DATE: 20140302
